FAERS Safety Report 15626364 (Version 1)
Quarter: 2018Q4

REPORT INFORMATION
  Report Type: Spontaneous
  Country: US (occurrence: US)
  Receive Date: 20181112
  Receipt Date: 20181112
  Transmission Date: 20190205
  Serious: No
  Sender: FDA-Public Use
  Company Number: None

PATIENT
  Age: 52 Year
  Sex: Female

DRUGS (1)
  1. MYCOPHENOLATE MOFETIL 500MG TABLET [Suspect]
     Active Substance: MYCOPHENOLATE MOFETIL
     Dates: start: 20181105

REACTIONS (4)
  - Abdominal pain upper [None]
  - Depressed mood [None]
  - Abdominal distension [None]
  - Back pain [None]

NARRATIVE: CASE EVENT DATE: 20181111
